FAERS Safety Report 23814416 (Version 3)
Quarter: 2024Q3

REPORT INFORMATION
  Report Type: Other
  Country: GR (occurrence: GR)
  Receive Date: 20240503
  Receipt Date: 20240913
  Transmission Date: 20241016
  Serious: Yes (Hospitalization, Other)
  Sender: EMD SERONO INC
  Company Number: GR-Merck Healthcare KGaA-2024022049

PATIENT
  Age: 82 Year
  Sex: Male

DRUGS (10)
  1. METFORMIN [Suspect]
     Active Substance: METFORMIN HYDROCHLORIDE
     Indication: Product used for unknown indication
  2. ATENOLOL [Suspect]
     Active Substance: ATENOLOL
     Indication: Product used for unknown indication
  3. OMEPRAZOLE [Suspect]
     Active Substance: OMEPRAZOLE
     Indication: Product used for unknown indication
     Route: 048
  4. FUROSEMIDE [Suspect]
     Active Substance: FUROSEMIDE
     Indication: Product used for unknown indication
     Route: 042
  5. COLCHICINE [Suspect]
     Active Substance: COLCHICINE
     Indication: Pericardial effusion
     Route: 048
  6. APIXABAN [Suspect]
     Active Substance: APIXABAN
     Indication: Product used for unknown indication
  7. OLMESARTAN [Suspect]
     Active Substance: OLMESARTAN
     Indication: Product used for unknown indication
  8. METHYLPREDNISOLONE [Suspect]
     Active Substance: METHYLPREDNISOLONE
     Indication: Pericardial effusion
     Route: 042
  9. NOREPINEPHRINE [Suspect]
     Active Substance: NOREPINEPHRINE\NOREPINEPHRINE BITARTRATE
     Indication: Product used for unknown indication
  10. DOPAMINE [Suspect]
     Active Substance: DOPAMINE HYDROCHLORIDE
     Indication: Oliguria
     Dosage: 3 MICROGRAM/KILOGRAM (PER MINUTE)
     Route: 042

REACTIONS (5)
  - Pulmonary congestion [Unknown]
  - Pulmonary hypertension [Unknown]
  - Cardiogenic shock [Recovered/Resolved]
  - Pleural effusion [Unknown]
  - Pericardial haemorrhage [Recovered/Resolved]
